FAERS Safety Report 6151551-3 (Version None)
Quarter: 2009Q2

REPORT INFORMATION
  Report Type: 
  Country: None (occurrence: None)
  Receive Date: 20090410
  Receipt Date: 20090401
  Transmission Date: 20091009
  Serious: Yes (Hospitalization)
  Sender: FDA-Public Use
  Company Number: US-ROCHE-625509

PATIENT
  Sex: Female
  Weight: 59 kg

DRUGS (2)
  1. CAPECITABINE [Suspect]
     Indication: COLORECTAL CANCER
     Route: 048
     Dates: start: 20070225, end: 20090306
  2. OXALIPLATIN [Suspect]
     Indication: COLORECTAL CANCER
     Dosage: RECEIVED TWO DOSES
     Route: 042

REACTIONS (4)
  - DIARRHOEA [None]
  - RECTAL ULCER [None]
  - STOMATITIS [None]
  - WEIGHT DECREASED [None]
